FAERS Safety Report 16853201 (Version 3)
Quarter: 2021Q1

REPORT INFORMATION
  Report Type: Spontaneous
  Country: US (occurrence: US)
  Receive Date: 20190925
  Receipt Date: 20210210
  Transmission Date: 20210419
  Serious: Yes (Hospitalization, Other)
  Sender: FDA-Public Use
  Company Number: US-GILEAD-2019-0429796

PATIENT
  Age: 37 Year
  Sex: Male
  Weight: 74.83 kg

DRUGS (33)
  1. TRUVADA [Suspect]
     Active Substance: EMTRICITABINE\TENOFOVIR DISOPROXIL FUMARATE
     Dosage: UNK
     Route: 065
     Dates: start: 20151103, end: 2017
  2. ABACAVIR. [Concomitant]
     Active Substance: ABACAVIR
  3. CLONIDINE. [Concomitant]
     Active Substance: CLONIDINE
  4. MUPIROCIN. [Concomitant]
     Active Substance: MUPIROCIN
  5. CLOBETASOL [Concomitant]
     Active Substance: CLOBETASOL
  6. PREZCOBIX [Concomitant]
     Active Substance: COBICISTAT\DARUNAVIR ETHANOLATE
  7. LISINOPRIL. [Concomitant]
     Active Substance: LISINOPRIL
  8. LORAZEPAM. [Concomitant]
     Active Substance: LORAZEPAM
  9. PANTOPRAZOLE [Concomitant]
     Active Substance: PANTOPRAZOLE
  10. IMIQUAD [Concomitant]
  11. OXYCODONE [Concomitant]
     Active Substance: OXYCODONE
  12. DOK [Concomitant]
     Active Substance: DOCUSATE SODIUM
  13. TRUVADA [Suspect]
     Active Substance: EMTRICITABINE\TENOFOVIR DISOPROXIL FUMARATE
     Indication: HIV INFECTION
     Dosage: UNK
     Route: 048
     Dates: start: 2010
  14. GABAPENTIN. [Concomitant]
     Active Substance: GABAPENTIN
  15. AMLODIPINE BESILATE [Concomitant]
     Active Substance: AMLODIPINE BESYLATE
  16. HYDROCHLOROTHIAZIDE. [Concomitant]
     Active Substance: HYDROCHLOROTHIAZIDE
  17. HYDRALAZINE [Concomitant]
     Active Substance: HYDRALAZINE HYDROCHLORIDE
  18. MINOXIDIL. [Concomitant]
     Active Substance: MINOXIDIL
  19. VELPHORO [Concomitant]
     Active Substance: SUCROFERRIC OXYHYDROXIDE
  20. LABETALOL [Concomitant]
     Active Substance: LABETALOL\LABETALOL HYDROCHLORIDE
  21. CEPHALEXIN [CEFALEXIN] [Concomitant]
     Active Substance: CEPHALEXIN
  22. BACTRIM [Concomitant]
     Active Substance: SULFAMETHOXAZOLE\TRIMETHOPRIM
  23. DIALYVITE [Concomitant]
     Active Substance: ASCORBIC ACID\BIOTIN\CALCIUM PANTOTHENATE\COBALAMIN\FOLIC ACID\NIACINAMIDE\PYRIDOXINE HYDROCHLORIDE\RIBOFLAVIN\THIAMINE MONONITRATE
  24. TRUVADA [Suspect]
     Active Substance: EMTRICITABINE\TENOFOVIR DISOPROXIL FUMARATE
     Dosage: UNK
     Route: 048
     Dates: start: 2014, end: 2017
  25. REYATAZ [Concomitant]
     Active Substance: ATAZANAVIR SULFATE
  26. ONDANSETRON [Concomitant]
     Active Substance: ONDANSETRON
  27. ATOVAQUONE. [Concomitant]
     Active Substance: ATOVAQUONE
  28. NORVIR [Concomitant]
     Active Substance: RITONAVIR
  29. TIVICAY [Concomitant]
     Active Substance: DOLUTEGRAVIR SODIUM
  30. CITALOPRAM [Concomitant]
     Active Substance: CITALOPRAM HYDROBROMIDE
  31. LAMIVUDINE. [Concomitant]
     Active Substance: LAMIVUDINE
  32. VIREAD [Suspect]
     Active Substance: TENOFOVIR DISOPROXIL FUMARATE
     Indication: HIV INFECTION
     Dosage: UNK
     Route: 065
     Dates: start: 2018
  33. NIFEDIPINE. [Concomitant]
     Active Substance: NIFEDIPINE

REACTIONS (15)
  - Pneumonia [Recovered/Resolved]
  - Pain [Not Recovered/Not Resolved]
  - Economic problem [Not Recovered/Not Resolved]
  - Anhedonia [Not Recovered/Not Resolved]
  - Hyperparathyroidism secondary [Not Recovered/Not Resolved]
  - Loss of personal independence in daily activities [Not Recovered/Not Resolved]
  - Anaemia [Not Recovered/Not Resolved]
  - Emotional distress [Not Recovered/Not Resolved]
  - Anxiety [Not Recovered/Not Resolved]
  - Fatigue [Not Recovered/Not Resolved]
  - Seizure [Not Recovered/Not Resolved]
  - Quality of life decreased [Not Recovered/Not Resolved]
  - End stage renal disease [Not Recovered/Not Resolved]
  - Depression [Not Recovered/Not Resolved]
  - Hyperkalaemia [Recovered/Resolved]

NARRATIVE: CASE EVENT DATE: 2018
